FAERS Safety Report 7951581-2 (Version None)
Quarter: 2011Q4

REPORT INFORMATION
  Report Type: 
  Country: None (occurrence: None)
  Receive Date: 20111201
  Receipt Date: 20111126
  Transmission Date: 20120403
  Serious: Yes (Other)
  Sender: FDA-Public Use
  Company Number: US-BAYER-2011-114287

PATIENT
  Sex: Female

DRUGS (1)
  1. ALEVE (CAPLET) [Suspect]
     Indication: DYSMENORRHOEA
     Dosage: 2 DF, UNK
     Route: 048

REACTIONS (5)
  - DYSMENORRHOEA [None]
  - MALAISE [None]
  - VAGINAL HAEMORRHAGE [None]
  - HEADACHE [None]
  - UNEVALUABLE EVENT [None]
